FAERS Safety Report 9513167 (Version 1)
Quarter: 2013Q3

REPORT INFORMATION
  Report Type: Spontaneous
  Country: US (occurrence: US)
  Receive Date: 20130910
  Receipt Date: 20130910
  Transmission Date: 20140515
  Serious: Yes (Other)
  Sender: FDA-Public Use
  Company Number: US-PFIZER INC-2013258627

PATIENT
  Age: 31 Year
  Sex: Male

DRUGS (3)
  1. CELEBREX [Suspect]
     Indication: OSTEOARTHRITIS
     Dosage: 200 MG, 1X/DAY (ON AND OFF)
  2. CELEBREX [Suspect]
     Indication: RHEUMATOID ARTHRITIS
  3. LANOXIN [Concomitant]
     Indication: CARDIAC DISORDER
     Dosage: 25 MG, 1X/DAY

REACTIONS (3)
  - Myocardial infarction [Unknown]
  - Cerebrovascular accident [Unknown]
  - Coronary artery disease [Not Recovered/Not Resolved]
